FAERS Safety Report 12435626 (Version 1)
Quarter: 2016Q2

REPORT INFORMATION
  Report Type: Spontaneous
  Country: US (occurrence: US)
  Receive Date: 20160603
  Receipt Date: 20160603
  Transmission Date: 20160815
  Serious: No
  Sender: FDA-Public Use
  Company Number: US-ROCHE-1749641

PATIENT
  Sex: Male

DRUGS (4)
  1. ELIQUIS [Concomitant]
     Active Substance: APIXABAN
  2. XELODA [Suspect]
     Active Substance: CAPECITABINE
     Indication: SQUAMOUS CELL CARCINOMA
     Route: 065
     Dates: start: 201305, end: 201308
  3. ATORVASTATIN [Concomitant]
     Active Substance: ATORVASTATIN
  4. XELODA [Suspect]
     Active Substance: CAPECITABINE
     Route: 065
     Dates: start: 201602

REACTIONS (11)
  - Skin exfoliation [Not Recovered/Not Resolved]
  - Gait disturbance [Unknown]
  - Skin exfoliation [Unknown]
  - Asthenia [Not Recovered/Not Resolved]
  - Neoplasm recurrence [Not Recovered/Not Resolved]
  - Skin disorder [Unknown]
  - Weight decreased [Recovering/Resolving]
  - Feeding disorder [Recovering/Resolving]
  - Skin fissures [Not Recovered/Not Resolved]
  - Gastrointestinal disorder [Recovered/Resolved]
  - Haemorrhage [Not Recovered/Not Resolved]
